FAERS Safety Report 9170636 (Version 2)
Quarter: 2013Q1

REPORT INFORMATION
  Report Type: Spontaneous
  Country: US (occurrence: None)
  Receive Date: 20130325
  Receipt Date: 20130325
  Transmission Date: 20140127
  Serious: Yes (Other)
  Sender: FDA-Public Use
  Company Number: 2013P1002787

PATIENT
  Age: 16 Year
  Sex: Male

DRUGS (2)
  1. MYORISAN [Suspect]
     Indication: ACNE
     Dates: start: 2012
  2. MYORISAN [Suspect]
     Indication: ACNE CYSTIC
     Dates: start: 2012

REACTIONS (1)
  - Depressed mood [None]
